FAERS Safety Report 7421697-8 (Version None)
Quarter: 2011Q2

REPORT INFORMATION
  Report Type: 
  Country: None (occurrence: None)
  Receive Date: 20110418
  Receipt Date: 20110405
  Transmission Date: 20111010
  Serious: Yes (Hospitalization, Other)
  Sender: FDA-Public Use
  Company Number: GB-PFIZER INC-2011084160

PATIENT
  Age: 39 Year
  Sex: Female
  Weight: 77 kg

DRUGS (4)
  1. NICOTINE [Suspect]
     Dosage: 14 MG, 1X/DAY
     Route: 062
     Dates: start: 20040102, end: 20040112
  2. CIPROFLOXACIN [Concomitant]
     Indication: BRONCHITIS
  3. NICORETTE [Suspect]
     Indication: SMOKING CESSATION THERAPY
     Dosage: UNK MG, UNK
     Route: 055
     Dates: start: 20040110, end: 20040119
  4. CEFALEXIN [Concomitant]
     Indication: BRONCHITIS
     Dosage: UNK
     Dates: start: 20031230

REACTIONS (7)
  - FEELING ABNORMAL [None]
  - DYSPNOEA [None]
  - TOBACCO WITHDRAWAL SYMPTOMS [None]
  - ANXIETY [None]
  - DEPRESSION [None]
  - PALPITATIONS [None]
  - CIRCULATORY COLLAPSE [None]
